FAERS Safety Report 7152848-0 (Version None)
Quarter: 2010Q4

REPORT INFORMATION
  Report Type: 
  Country: None (occurrence: None)
  Receive Date: 20101123
  Receipt Date: 20101021
  Transmission Date: 20110411
  Serious: No
  Sender: FDA-Public Use
  Company Number: 020926

PATIENT
  Sex: Female

DRUGS (1)
  1. CIMZIA [Suspect]
     Dosage: (SUBCUTANEOUS)
     Route: 058
     Dates: start: 20100815

REACTIONS (6)
  - COUGH [None]
  - HEADACHE [None]
  - INFLUENZA [None]
  - JOINT INJURY [None]
  - LOSS OF CONSCIOUSNESS [None]
  - VOMITING [None]
